FAERS Safety Report 5677441-8 (Version None)
Quarter: 2008Q1

REPORT INFORMATION
  Report Type: 
  Country: None (occurrence: None)
  Receive Date: 20080324
  Receipt Date: 20080313
  Transmission Date: 20080703
  Serious: Yes (Death, Hospitalization)
  Sender: FDA-Public Use
  Company Number: JP-JNJFOC-20080204843

PATIENT
  Sex: Female

DRUGS (11)
  1. TOPINA [Suspect]
     Route: 048
  2. TOPINA [Suspect]
     Indication: HYPOXIC ENCEPHALOPATHY
     Route: 048
  3. DEPAKENE [Concomitant]
     Route: 048
  4. SODIUM PHOSPHATE MONOBASIC [Concomitant]
     Route: 048
  5. ASPARA POTASSIUM [Concomitant]
     Route: 048
  6. CONTOL [Concomitant]
     Route: 048
  7. MIYA BM [Concomitant]
     Route: 048
  8. SWERTIA AND SODIUM BICARBONATE [Concomitant]
     Route: 048
  9. LASIX [Concomitant]
     Route: 048
  10. ALDACTONE [Concomitant]
     Route: 048
  11. PHENOBAL [Concomitant]
     Route: 048

REACTIONS (3)
  - ACUTE RESPIRATORY DISTRESS SYNDROME [None]
  - ATELECTASIS [None]
  - PYREXIA [None]
